FAERS Safety Report 21542369 (Version 5)
Quarter: 2022Q4

REPORT INFORMATION
  Report Type: Spontaneous
  Country: US (occurrence: US)
  Receive Date: 20221102
  Receipt Date: 20221216
  Transmission Date: 20230112
  Serious: No
  Sender: FDA-Public Use
  Company Number: US-PFIZER INC-PV202200094080

PATIENT
  Age: 53 Year
  Sex: Female

DRUGS (1)
  1. IBRANCE [Suspect]
     Active Substance: PALBOCICLIB
     Dosage: 125 MG
     Dates: start: 20221028

REACTIONS (11)
  - Glossitis [Unknown]
  - Swollen tongue [Unknown]
  - Dyspnoea [Unknown]
  - Dysuria [Unknown]
  - Chromaturia [Unknown]
  - Hepatic enzyme increased [Unknown]
  - Hot flush [Unknown]
  - Somnolence [Recovering/Resolving]
  - Constipation [Unknown]
  - Fatigue [Unknown]
  - Product dose omission issue [Unknown]

NARRATIVE: CASE EVENT DATE: 20220101
